FAERS Safety Report 4786216-3 (Version None)
Quarter: 2005Q4

REPORT INFORMATION
  Report Type: 
  Country: None (occurrence: None)
  Receive Date: 20051003
  Receipt Date: 20051003
  Transmission Date: 20060501
  Serious: Yes (Death, Hospitalization)
  Sender: FDA-Public Use
  Company Number: None

PATIENT
  Sex: Male
  Weight: 65 kg

DRUGS (15)
  1. DAUNORUBICIN [Suspect]
     Indication: ACUTE MYELOID LEUKAEMIA
     Dosage: SEE IMAGE
     Dates: start: 20050910, end: 20050912
  2. CYTARABINE [Suspect]
     Dosage: SEE IMAGE
     Dates: start: 20050910, end: 20050916
  3. ALLOPURINOL [Concomitant]
  4. ANCEF [Concomitant]
  5. BENADRYL [Concomitant]
  6. CEFEPIME [Concomitant]
  7. CHLORHEXADINE [Concomitant]
  8. DEMEROL [Concomitant]
  9. DEXAMETHASONE [Concomitant]
  10. KYTRIL [Concomitant]
  11. MORPHINE SULFATE [Concomitant]
  12. REGLAN [Concomitant]
  13. TYLENOL (CAPLET) [Concomitant]
  14. VANCOMYCIN [Concomitant]
  15. VERSED [Concomitant]

REACTIONS (5)
  - CARDIO-RESPIRATORY ARREST [None]
  - KLEBSIELLA SEPSIS [None]
  - MASS [None]
  - NEUTROPENIC SEPSIS [None]
  - TONSILLAR DISORDER [None]
